FAERS Safety Report 6745868-9 (Version None)
Quarter: 2010Q2

REPORT INFORMATION
  Report Type: 
  Country: None (occurrence: None)
  Receive Date: 20100528
  Receipt Date: 20100521
  Transmission Date: 20101027
  Serious: Yes (Other)
  Sender: FDA-Public Use
  Company Number: US-BAYER-201023225NA

PATIENT
  Sex: Male

DRUGS (2)
  1. AVELOX [Suspect]
     Indication: PNEUMONIA
     Dates: start: 20071201
  2. AVELOX [Suspect]
     Dates: start: 20091101

REACTIONS (2)
  - DIAPHRAGMATIC PARALYSIS [None]
  - TENDONITIS [None]
